FAERS Safety Report 5424511-5 (Version None)
Quarter: 2007Q3

REPORT INFORMATION
  Report Type: 
  Country: None (occurrence: None)
  Receive Date: 20070822
  Receipt Date: 20070816
  Transmission Date: 20080115
  Serious: Yes (Other)
  Sender: FDA-Public Use
  Company Number: GXKR2007DE06471

PATIENT
  Age: 84 Year
  Sex: Male
  Weight: 70 kg

DRUGS (2)
  1. IBUHEXAL (NGX)(IBUPROFEN) FILM-COATED TABLET, 600MG [Suspect]
     Indication: CONTUSION
     Dosage: UP TO 3X1 TABLET DAILY, ORAL
     Route: 048
     Dates: start: 20070718, end: 20070723
  2. ACETYLSALICYLIC ACID SRT [Concomitant]

REACTIONS (5)
  - DRUG INEFFECTIVE [None]
  - FALL [None]
  - TRANSIENT ISCHAEMIC ATTACK [None]
  - VISUAL DISTURBANCE [None]
  - WEIGHT INCREASED [None]
